FAERS Safety Report 5498334-5 (Version None)
Quarter: 2007Q4

REPORT INFORMATION
  Report Type: 
  Country: None (occurrence: None)
  Receive Date: 20071025
  Receipt Date: 20070502
  Transmission Date: 20080405
  Serious: No
  Sender: FDA-Public Use
  Company Number: A0649693A

PATIENT
  Age: 66 Year
  Sex: Female

DRUGS (6)
  1. ADVAIR DISKUS 100/50 [Suspect]
     Indication: ASTHMA
     Dosage: 1PUFF UNKNOWN
     Route: 055
     Dates: start: 20070501
  2. FLOVENT [Suspect]
     Indication: ASTHMA
     Dosage: 1PUFF TWICE PER DAY
     Route: 055
     Dates: start: 20070401
  3. BENICAR [Concomitant]
  4. INDERAL [Concomitant]
  5. SINGULAIR [Concomitant]
  6. ALLEGRA [Concomitant]

REACTIONS (5)
  - ANXIETY [None]
  - BLOOD PRESSURE DECREASED [None]
  - CHEST DISCOMFORT [None]
  - EYE SWELLING [None]
  - SWELLING FACE [None]
